FAERS Safety Report 23261899 (Version 1)
Quarter: 2023Q4

REPORT INFORMATION
  Report Type: Report from Study
  Country: FR (occurrence: FR)
  Receive Date: 20231205
  Receipt Date: 20231205
  Transmission Date: 20240109
  Serious: Yes (Other)
  Sender: FDA-Public Use
  Company Number: FR-002147023-NVSC2023FR256449

PATIENT
  Sex: Male

DRUGS (3)
  1. LUTATHERA [Suspect]
     Active Substance: LUTETIUM OXODOTREOTIDE LU-177
     Indication: Meningioma
     Dosage: 7262 MBQ, ONCE/SINGLE (1ST CYCLE)
     Route: 065
     Dates: start: 20230417, end: 20230417
  2. LUTATHERA [Suspect]
     Active Substance: LUTETIUM OXODOTREOTIDE LU-177
     Dosage: 7236 MBQ, ONCE/SINGLE (2ND CYCLE)
     Route: 065
     Dates: start: 20230612, end: 20230612
  3. LUTATHERA [Suspect]
     Active Substance: LUTETIUM OXODOTREOTIDE LU-177
     Dosage: 7277 MBQ, ONCE/SINGLE (3RD CYCLE)
     Route: 065
     Dates: start: 20230817, end: 20230817

REACTIONS (1)
  - Hepatic cytolysis [Unknown]
